FAERS Safety Report 9306020 (Version 4)
Quarter: 2013Q3

REPORT INFORMATION
  Report Type: Spontaneous
  Country: US (occurrence: US)
  Receive Date: 20130523
  Receipt Date: 20130820
  Transmission Date: 20140515
  Serious: No
  Sender: FDA-Public Use
  Company Number: US-PFIZER INC-2013155658

PATIENT
  Age: 48 Year
  Sex: Male

DRUGS (4)
  1. INLYTA [Suspect]
     Indication: RENAL CANCER
     Dosage: UNK
     Route: 048
     Dates: start: 20130202
  2. INLYTA [Suspect]
     Dosage: 5 MG, 2X/DAY
     Dates: start: 20130214, end: 20130515
  3. INLYTA [Suspect]
     Dosage: 7 MG, 2X/DAY (EVERY 12 HOURS)
     Route: 048
  4. LISINOPRIL [Suspect]
     Dosage: UNK

REACTIONS (1)
  - Cough [Not Recovered/Not Resolved]
